FAERS Safety Report 8020512-1 (Version None)
Quarter: 2012Q1

REPORT INFORMATION
  Report Type: 
  Country: None (occurrence: None)
  Receive Date: 20120103
  Receipt Date: 20111228
  Transmission Date: 20120608
  Serious: Yes (Death, Hospitalization)
  Sender: FDA-Public Use
  Company Number: JP-ROCHE-718723

PATIENT
  Sex: Female

DRUGS (57)
  1. ACTEMRA [Suspect]
     Route: 041
     Dates: start: 20090831, end: 20090831
  2. PREDNISOLONE [Suspect]
     Indication: RHEUMATOID ARTHRITIS
     Dosage: DOSE DECREASED
     Route: 048
  3. LICORICE [Suspect]
     Dosage: INTRAVENOUS (NOT OTHERWISE SPECIFIED)
     Route: 042
     Dates: start: 20090617, end: 20090622
  4. FUROSEMIDE [Suspect]
     Indication: OEDEMA
     Route: 042
     Dates: start: 20090613, end: 20090623
  5. TACROLIMUS [Suspect]
     Dates: start: 20091209, end: 20091215
  6. AMOBAN [Concomitant]
     Route: 048
  7. MUCOSTA [Concomitant]
     Route: 048
  8. FAMOTIDINE [Concomitant]
     Route: 048
  9. ACTEMRA [Suspect]
     Indication: RHEUMATOID ARTHRITIS
     Route: 041
     Dates: start: 20090612, end: 20090612
  10. ACTEMRA [Suspect]
     Route: 041
     Dates: start: 20090714, end: 20090714
  11. ACTEMRA [Suspect]
     Route: 041
     Dates: start: 20090929, end: 20090929
  12. PREDNISOLONE [Suspect]
     Route: 048
     Dates: start: 20090623, end: 20090713
  13. PREDNISOLONE [Suspect]
     Route: 048
     Dates: start: 20090714, end: 20090722
  14. ASPIRIN [Suspect]
     Indication: PROPHYLAXIS
     Route: 048
  15. WARFARIN POTASSIUM [Suspect]
     Indication: PROPHYLAXIS
     Route: 048
     Dates: start: 20091205, end: 20091230
  16. PREDNISOLONE [Suspect]
     Route: 048
     Dates: start: 20090903, end: 20091026
  17. PREDNISOLONE AND PREDNISOLONE ACETATE AND PREDNISOLONE SODIUM SUCCINAT [Suspect]
     Indication: PLATELET COUNT DECREASED
     Dosage: INTRAVENOUS (NOT OTHERWISE SPECIFIED), DOSE INCRESED.
     Route: 042
     Dates: start: 20090619, end: 20090620
  18. RABEPRAZOLE SODIUM [Concomitant]
     Route: 048
  19. TACROLIMUS [Suspect]
  20. AZULFIDINE [Concomitant]
     Route: 048
     Dates: start: 20081114, end: 20090526
  21. SENNOSIDE [Concomitant]
     Route: 048
  22. SULFAMETHOXAZOLE AND TRIMETHOPRIM [Concomitant]
     Route: 048
  23. ACTEMRA [Suspect]
     Route: 041
     Dates: start: 20091217, end: 20091217
  24. PREDNISOLONE [Suspect]
     Route: 048
     Dates: start: 20090806, end: 20090812
  25. PREDNISOLONE [Suspect]
     Route: 048
     Dates: start: 20091027, end: 20091124
  26. PREDNISOLONE [Suspect]
     Dosage: DOSE REDUCED
     Route: 048
     Dates: start: 20091125, end: 20091220
  27. LICORICE [Suspect]
     Route: 042
     Dates: start: 20090623, end: 20090629
  28. FUROSEMIDE [Suspect]
     Route: 048
     Dates: start: 20090616, end: 20090722
  29. FUROSEMIDE [Suspect]
     Route: 048
  30. BUCILLAMINE [Concomitant]
     Route: 048
     Dates: start: 20081024, end: 20090624
  31. CALFINA [Concomitant]
     Route: 048
  32. GLAKAY [Concomitant]
     Route: 048
  33. NEORAL [Concomitant]
     Dates: start: 20091216
  34. PREDNISOLONE [Suspect]
     Route: 048
     Dates: start: 20090723, end: 20090729
  35. PREDNISOLONE [Suspect]
     Route: 048
     Dates: start: 20090730, end: 20090805
  36. PREDNISOLONE [Suspect]
     Route: 048
     Dates: start: 20090413, end: 20090826
  37. PREDNISOLONE AND PREDNISOLONE ACETATE AND PREDNISOLONE SODIUM SUCCINAT [Suspect]
     Dosage: INTRAVENOUS (NOT OTHERWISE SPECIFIED)
     Route: 042
     Dates: start: 20090621, end: 20090623
  38. ASPIRIN [Suspect]
     Dates: start: 20091215, end: 20100105
  39. AZULFIDINE [Concomitant]
     Route: 048
     Dates: start: 20090527, end: 20090624
  40. RABEPRAZOLE SODIUM [Concomitant]
     Route: 048
  41. NEORAL [Concomitant]
     Dates: start: 20091221, end: 20100105
  42. ACTEMRA [Suspect]
     Route: 041
     Dates: start: 20091027, end: 20091027
  43. PREDNISOLONE [Suspect]
     Dosage: DOSE DECREASED.
     Route: 048
     Dates: start: 20090618, end: 20090622
  44. PREDNISOLONE [Suspect]
     Route: 048
     Dates: start: 20090827, end: 20090902
  45. PREDNISOLONE [Suspect]
     Route: 048
     Dates: start: 20090921, end: 20100105
  46. LICORICE [Suspect]
     Indication: HEPATIC FUNCTION ABNORMAL
     Dosage: FORM:INTRAVENOUS (NOT OTHERWISE SPECIFIED),
     Route: 042
  47. TACROLIMUS [Suspect]
     Indication: RHEUMATOID ARTHRITIS
     Route: 048
  48. VANCOMYCIN HCL [Concomitant]
     Route: 042
  49. TIENAM [Concomitant]
     Route: 042
     Dates: start: 20090622, end: 20090629
  50. ACTONEL [Concomitant]
     Route: 048
  51. MOBIC [Concomitant]
     Indication: RHEUMATOID ARTHRITIS
     Route: 048
     Dates: end: 20091230
  52. WARFARIN POTASSIUM [Suspect]
     Dosage: DOSE INTERRUPTED
     Dates: start: 20091231, end: 20100105
  53. FUROSEMIDE [Suspect]
     Route: 048
     Dates: start: 20090723, end: 20090928
  54. TIENAM [Concomitant]
     Route: 042
     Dates: start: 20090818, end: 20090822
  55. MEROPENEM [Concomitant]
     Route: 042
     Dates: start: 20090806, end: 20090817
  56. CLINDAMYCIN HCL [Concomitant]
     Route: 042
     Dates: start: 20090806, end: 20090817
  57. SULFAMETHOXAZOLE AND TRIMETHOPRIM [Concomitant]
     Route: 048
     Dates: start: 20091215, end: 20100105

REACTIONS (9)
  - HYPOKALAEMIA [None]
  - HYPERLIPIDAEMIA [None]
  - PYREXIA [None]
  - HYPERTENSION [None]
  - OEDEMA [None]
  - UPPER GASTROINTESTINAL HAEMORRHAGE [None]
  - HYPOALBUMINAEMIA [None]
  - HISTIOCYTOSIS HAEMATOPHAGIC [None]
  - HYPERGLYCAEMIA [None]
